FAERS Safety Report 6693335-3 (Version None)
Quarter: 2010Q2

REPORT INFORMATION
  Report Type: 
  Country: None (occurrence: None)
  Receive Date: 20100420
  Receipt Date: 20100407
  Transmission Date: 20101027
  Serious: Yes (Hospitalization)
  Sender: FDA-Public Use
  Company Number: TRP_06907_2010

PATIENT
  Sex: Male
  Weight: 109.3169 kg

DRUGS (2)
  1. INFERGEN [Suspect]
     Indication: HEPATITIS C
     Dosage: 9 ?G QD SUBCUTANEOUS
     Route: 058
     Dates: start: 20100312, end: 20100406
  2. RIBAVIRIN [Suspect]
     Indication: HEPATITIS C
     Dosage: 400 MG BID ORAL
     Route: 048
     Dates: start: 20100312, end: 20100406

REACTIONS (6)
  - BACTERIAL INFECTION [None]
  - BODY TEMPERATURE INCREASED [None]
  - CHEST PAIN [None]
  - DYSPNOEA [None]
  - FATIGUE [None]
  - HEART RATE IRREGULAR [None]
